FAERS Safety Report 10065723 (Version 1)
Quarter: 2014Q2

REPORT INFORMATION
  Report Type: Spontaneous
  Country: US (occurrence: US)
  Receive Date: 20140408
  Receipt Date: 20140408
  Transmission Date: 20141212
  Serious: No
  Sender: FDA-Public Use
  Company Number: US-ASTELLAS-2014US002945

PATIENT
  Age: 57 Year
  Sex: Female

DRUGS (4)
  1. MYRBETRIQ [Suspect]
     Indication: PRODUCT USED FOR UNKNOWN INDICATION
     Dosage: 50 MG, UID/QD
     Route: 048
     Dates: start: 20140312
  2. MELATONIN [Concomitant]
     Indication: PRODUCT USED FOR UNKNOWN INDICATION
     Dosage: UNK
     Route: 065
  3. DEPAKOTE [Concomitant]
     Indication: PRODUCT USED FOR UNKNOWN INDICATION
     Dosage: UNK
     Route: 065
  4. KEPPRA [Concomitant]
     Indication: PRODUCT USED FOR UNKNOWN INDICATION
     Dosage: UNK
     Route: 065

REACTIONS (4)
  - Intentional product misuse [Unknown]
  - Insomnia [Unknown]
  - Vomiting [Recovered/Resolved]
  - Abdominal discomfort [Unknown]
